FAERS Safety Report 25690395 (Version 1)
Quarter: 2025Q3

REPORT INFORMATION
  Report Type: Spontaneous
  Country: CA (occurrence: CA)
  Receive Date: 20250818
  Receipt Date: 20250818
  Transmission Date: 20251021
  Serious: Yes (Hospitalization, Other)
  Sender: TEVA
  Company Number: CA-TEVA-VS-3363972

PATIENT
  Age: 42 Year
  Sex: Female

DRUGS (2)
  1. CLINDAMYCIN HYDROCHLORIDE [Suspect]
     Active Substance: CLINDAMYCIN HYDROCHLORIDE
     Indication: Impetigo
     Route: 065
  2. PREDNISONE [Concomitant]
     Active Substance: PREDNISONE
     Indication: Product used for unknown indication
     Route: 065

REACTIONS (10)
  - Haematochezia [Unknown]
  - Atrial fibrillation [Unknown]
  - Ear pain [Unknown]
  - Mouth ulceration [Unknown]
  - Stevens-Johnson syndrome [Unknown]
  - Visual impairment [Unknown]
  - Hypoacusis [Unknown]
  - Hypersensitivity [Unknown]
  - Rash [Unknown]
  - Internal haemorrhage [Unknown]
